FAERS Safety Report 6232645-0 (Version None)
Quarter: 2009Q2

REPORT INFORMATION
  Report Type: 
  Country: None (occurrence: None)
  Receive Date: 20090612
  Receipt Date: 20090612
  Transmission Date: 20091009
  Serious: No
  Sender: FDA-Public Use
  Company Number: None

PATIENT
  Age: 34 Year
  Sex: Female
  Weight: 79.3795 kg

DRUGS (2)
  1. PRILOSEC OTC [Suspect]
     Indication: DYSPEPSIA
     Dosage: 20.6 MG 1 TIME PER DAY PO
     Route: 048
     Dates: start: 20090527, end: 20090530
  2. PRILOSEC OTC [Suspect]
     Indication: DYSPEPSIA
     Dosage: 20.6 MG 1 TIME PER DAY PO
     Route: 048
     Dates: start: 20090608, end: 20090611

REACTIONS (5)
  - ANXIETY [None]
  - DEPRESSION [None]
  - GASTRIC DISORDER [None]
  - INSOMNIA [None]
  - THIRST [None]
